FAERS Safety Report 16129831 (Version 3)
Quarter: 2019Q2

REPORT INFORMATION
  Report Type: Spontaneous
  Country: TR (occurrence: TR)
  Receive Date: 20190328
  Receipt Date: 20190418
  Transmission Date: 20190711
  Serious: Yes (Other)
  Sender: FDA-Public Use
  Company Number: TR-MYLANLABS-2019M1029001

PATIENT
  Sex: Male

DRUGS (2)
  1. COLISTIMETHATE SODIUM. [Concomitant]
     Active Substance: COLISTIMETHATE SODIUM
     Dosage: UNK
  2. TOBI [Suspect]
     Active Substance: TOBRAMYCIN
     Indication: CYSTIC FIBROSIS
     Dosage: 2 DF, BID (2X1 (MORNING AND EVENING))
     Route: 065

REACTIONS (3)
  - Drug ineffective [Unknown]
  - Overgrowth bacterial [Unknown]
  - Drug hypersensitivity [Unknown]
